FAERS Safety Report 5828702-0 (Version None)
Quarter: 2008Q3

REPORT INFORMATION
  Report Type: 
  Country: None (occurrence: None)
  Receive Date: 20080731
  Receipt Date: 20080721
  Transmission Date: 20090109
  Serious: Yes (Hospitalization)
  Sender: FDA-Public Use
  Company Number: GB-ASTRAZENECA-2008SE03523

PATIENT
  Age: 28795 Day
  Sex: Female
  Weight: 48 kg

DRUGS (15)
  1. MARCAINE [Suspect]
     Route: 037
     Dates: start: 20080529, end: 20080530
  2. MARCAINE [Suspect]
     Route: 037
     Dates: start: 20080530, end: 20080605
  3. MARCAINE [Suspect]
     Route: 037
     Dates: start: 20080605, end: 20080610
  4. METOCLOPRAMID [Concomitant]
     Indication: NAUSEA
     Route: 048
     Dates: start: 20080530
  5. ONDANSETRON [Concomitant]
     Indication: NAUSEA
     Route: 048
     Dates: start: 20080512, end: 20080610
  6. ACETYLSALICYLIC ACID SRT [Concomitant]
     Indication: CEREBROVASCULAR ACCIDENT
     Route: 048
     Dates: start: 19900101
  7. FLUNITRAZEPAM [Concomitant]
     Indication: INSOMNIA
     Route: 048
     Dates: start: 20070101
  8. SALMETEROL [Concomitant]
     Indication: ASTHMA
     Route: 055
     Dates: start: 19750101
  9. SYMBICORT [Concomitant]
     Indication: ASTHMA
     Route: 055
     Dates: start: 19750101
  10. MORPHINE [Concomitant]
     Indication: PAIN
     Route: 037
     Dates: start: 20080529, end: 20080530
  11. MORPHINE [Concomitant]
     Route: 037
     Dates: start: 20080530, end: 20080605
  12. MORPHINE [Concomitant]
     Route: 037
     Dates: start: 20080605, end: 20080610
  13. CLONIDINE [Concomitant]
     Indication: PAIN
     Route: 037
     Dates: start: 20080530, end: 20080605
  14. CLONIDINE [Concomitant]
     Route: 037
     Dates: start: 20080605, end: 20080610
  15. KETOBEMIDON [Concomitant]
     Indication: PAIN
     Dates: start: 20080523, end: 20080618

REACTIONS (3)
  - HEADACHE [None]
  - MUSCULOSKELETAL STIFFNESS [None]
  - PYREXIA [None]
